FAERS Safety Report 5091064-3 (Version None)
Quarter: 2006Q3

REPORT INFORMATION
  Report Type: 
  Country: None (occurrence: None)
  Receive Date: 20060829
  Receipt Date: 20060822
  Transmission Date: 20061208
  Serious: Yes (Hospitalization)
  Sender: FDA-Public Use
  Company Number: PHBS2006ES12687

PATIENT
  Age: 28 Year
  Sex: Male

DRUGS (5)
  1. OLANZAPINE [Suspect]
     Dosage: 0.56 G, ONCE/SINGLE
     Route: 048
  2. CLOTIAPINE [Suspect]
     Dosage: 0.8 G, ONCE/SINGLE
     Route: 048
  3. LORAZEPAM (NGX) [Suspect]
     Dosage: 25 MG, ONCE/SINGLE
     Route: 048
  4. TOPIRAMATE (NGX) [Suspect]
     Route: 048
  5. CARBAMAZEPINE [Suspect]
     Dosage: 40 G, ONCE/SINGLE
     Route: 048

REACTIONS (2)
  - POISONING [None]
  - SUICIDE ATTEMPT [None]
